FAERS Safety Report 5498657-X (Version None)
Quarter: 2007Q4

REPORT INFORMATION
  Report Type: 
  Country: None (occurrence: None)
  Receive Date: 20071026
  Receipt Date: 20071018
  Transmission Date: 20080405
  Serious: Yes (Other)
  Sender: FDA-Public Use
  Company Number: US-JNJFOC-20071005265

PATIENT
  Age: 49 Year
  Sex: Male
  Weight: 99.79 kg

DRUGS (2)
  1. EXTRA STRENGTH TYLENOL [Suspect]
  2. EXTRA STRENGTH TYLENOL [Suspect]
     Indication: TENSION HEADACHE
     Dosage: 500 OR 1000 MG Q 4-6 HOURS DAILY

REACTIONS (3)
  - DEPENDENCE [None]
  - FEELING JITTERY [None]
  - NERVOUSNESS [None]
